FAERS Safety Report 23428884 (Version 1)
Quarter: 2024Q1

REPORT INFORMATION
  Report Type: Spontaneous
  Country: CN (occurrence: CN)
  Receive Date: 20240122
  Receipt Date: 20240122
  Transmission Date: 20240410
  Serious: Yes (Other)
  Sender: FDA-Public Use
  Company Number: CN-PFIZER INC-PV202400007233

PATIENT
  Age: 10 Year
  Sex: Male
  Weight: 29 kg

DRUGS (6)
  1. AZITHROMYCIN [Suspect]
     Active Substance: AZITHROMYCIN
     Indication: Pneumonia
     Dosage: 0.15 G, 1X/DAY
     Route: 048
     Dates: start: 20240108
  2. SODIUM CHLORIDE [Suspect]
     Active Substance: SODIUM CHLORIDE
     Indication: Pneumonia
     Dosage: 100 ML, 2X/DAY
     Route: 041
     Dates: start: 20240107
  3. CEFTAZIDIME [Suspect]
     Active Substance: CEFTAZIDIME
     Indication: Pneumonia
     Dosage: 1.4 G, 2X/DAY
     Route: 041
     Dates: start: 20240107
  4. SODIUM CHLORIDE [Concomitant]
     Active Substance: SODIUM CHLORIDE
     Indication: Catheter management
     Dosage: 100 ML, 1X/DAY
     Route: 041
     Dates: start: 20240107, end: 20240115
  5. TAN RE QING [Concomitant]
     Indication: Pneumonia
     Dosage: 10 ML, 1X/DAY
     Route: 041
     Dates: start: 20240107, end: 20240111
  6. DEXTROSE [Concomitant]
     Active Substance: DEXTROSE\DEXTROSE MONOHYDRATE
     Indication: Pneumonia
     Dosage: 150 ML, 1X/DAY
     Route: 041
     Dates: start: 20240107, end: 20240111

REACTIONS (4)
  - Ocular hyperaemia [Recovered/Resolved]
  - Eye swelling [Recovered/Resolved]
  - Rash pruritic [Recovered/Resolved]
  - Rash erythematous [Recovered/Resolved]

NARRATIVE: CASE EVENT DATE: 20240110
